FAERS Safety Report 6905607-5 (Version None)
Quarter: 2010Q3

REPORT INFORMATION
  Report Type: 
  Country: None (occurrence: None)
  Receive Date: 20100804
  Receipt Date: 20100726
  Transmission Date: 20110219
  Serious: Yes (Hospitalization)
  Sender: FDA-Public Use
  Company Number: AU-SANOFI-AVENTIS-2010SA040382

PATIENT
  Age: 65 Year
  Sex: Female
  Weight: 67 kg

DRUGS (2)
  1. CLEXANE [Suspect]
     Route: 058
     Dates: start: 20100528, end: 20100528
  2. CLEXANE [Suspect]
     Route: 058
     Dates: start: 20100530

REACTIONS (3)
  - HAEMATOMA [None]
  - INFECTION [None]
  - INTESTINAL HAEMORRHAGE [None]
